FAERS Safety Report 12585194 (Version 1)
Quarter: 2016Q3

REPORT INFORMATION
  Report Type: Report from Study
  Country: US (occurrence: US)
  Receive Date: 20160723
  Receipt Date: 20160723
  Transmission Date: 20161109
  Serious: No
  Sender: FDA-Public Use
  Company Number: PHEH2016US018260

PATIENT
  Sex: Female

DRUGS (1)
  1. SIGNIFOR [Suspect]
     Active Substance: PASIREOTIDE
     Indication: NELSON^S SYNDROME
     Dosage: 0.6 MG, BID
     Route: 058
     Dates: start: 20160610

REACTIONS (1)
  - Diarrhoea [Not Recovered/Not Resolved]
